FAERS Safety Report 20211639 (Version 1)
Quarter: 2021Q4

REPORT INFORMATION
  Report Type: Spontaneous
  Country: DE (occurrence: DE)
  Receive Date: 20211221
  Receipt Date: 20211221
  Transmission Date: 20220303
  Serious: Yes (Hospitalization, Other)
  Sender: FDA-Public Use
  Company Number: DE-CELGENE-DEU-20210908315

PATIENT
  Age: 82 Year
  Sex: Female

DRUGS (17)
  1. ABRAXANE [Suspect]
     Active Substance: PACLITAXEL
     Indication: Non-small cell lung cancer
     Dosage: 119 MILLIGRAM
     Route: 065
     Dates: start: 20210216, end: 20210310
  2. NIVOLUMAB [Suspect]
     Active Substance: NIVOLUMAB
     Indication: Non-small cell lung cancer
     Dosage: 360 MILLIGRAM
     Route: 041
     Dates: start: 20210216, end: 20210519
  3. IPILIMUMAB [Suspect]
     Active Substance: IPILIMUMAB
     Indication: Non-small cell lung cancer
     Dosage: 57 MILLIGRAM
     Route: 041
     Dates: start: 20210216, end: 20210519
  4. CARBOPLATIN [Suspect]
     Active Substance: CARBOPLATIN
     Indication: Non-small cell lung cancer
     Dosage: 114 MILLIGRAM
     Route: 041
     Dates: start: 20210216, end: 20210310
  5. METAMIZOLE SODIUM [Concomitant]
     Active Substance: METAMIZOLE SODIUM
     Indication: Illness
     Route: 065
  6. SIMVASTATIN [Concomitant]
     Active Substance: SIMVASTATIN
     Indication: Illness
     Route: 065
  7. ELIQUIS [Concomitant]
     Active Substance: APIXABAN
     Indication: Illness
     Route: 065
  8. AMLODIPINE BESYLATE [Concomitant]
     Active Substance: AMLODIPINE BESYLATE
     Indication: Illness
     Route: 065
  9. RAMIPRIL [Concomitant]
     Active Substance: RAMIPRIL
     Indication: Illness
     Route: 065
  10. PANTOPRAZOLE SODIUM [Concomitant]
     Active Substance: PANTOPRAZOLE SODIUM
     Indication: Illness
     Route: 065
  11. L-Thyroxin 25 [Concomitant]
     Indication: Illness
     Route: 065
  12. Furosemid 40 [Concomitant]
     Indication: Illness
     Route: 065
  13. Vitamin B 1 [Concomitant]
     Indication: Illness
     Route: 065
  14. CHOLECALCIFEROL [Concomitant]
     Active Substance: CHOLECALCIFEROL
     Indication: Illness
     Route: 065
  15. FOLIC ACID [Concomitant]
     Active Substance: FOLIC ACID
     Indication: Illness
     Dosage: 100 MILLIGRAM
     Route: 065
     Dates: start: 20210521
  16. FOLIC ACID [Concomitant]
     Active Substance: FOLIC ACID
     Dosage: 50 MILLIGRAM
     Route: 065
     Dates: start: 20210521
  17. FOLIC ACID [Concomitant]
     Active Substance: FOLIC ACID
     Dosage: WEEKLY REDUCTION TILL 30,15,10,5 MG.
     Route: 065
     Dates: start: 20210528

REACTIONS (3)
  - Pancreatic failure [Recovered/Resolved]
  - Escherichia sepsis [Recovered/Resolved]
  - Pneumonitis [Recovered/Resolved]

NARRATIVE: CASE EVENT DATE: 20210312
